FAERS Safety Report 7622650-1 (Version None)
Quarter: 2011Q3

REPORT INFORMATION
  Report Type: 
  Country: None (occurrence: None)
  Receive Date: 20110712
  Receipt Date: 20110628
  Transmission Date: 20111222
  Serious: Yes (Hospitalization, Other)
  Sender: FDA-Public Use
  Company Number: IPC201106-001926

PATIENT
  Age: 25 Year
  Sex: Female

DRUGS (4)
  1. METOPROLOL TARTRATE [Suspect]
     Dosage: INGESTION OF 20 TABLETS (50 MG)
  2. VERAPAMIL [Suspect]
     Dosage: INGESTION OF 25 TABLETS (40 MG)
  3. CLONAZEPAM [Suspect]
     Indication: DEPRESSION
     Dosage: 1 MG
  4. SERTALIN [Suspect]
     Indication: DEPRESSION
     Dosage: 50 MG

REACTIONS (13)
  - VISUAL FIELD DEFECT [None]
  - BRADYCARDIA [None]
  - PUPIL FIXED [None]
  - SUICIDE ATTEMPT [None]
  - COMA SCALE ABNORMAL [None]
  - OPTIC ATROPHY [None]
  - HYPOTENSION [None]
  - MULTIPLE DRUG OVERDOSE INTENTIONAL [None]
  - ATRIOVENTRICULAR BLOCK FIRST DEGREE [None]
  - IRRITABILITY [None]
  - PALLOR [None]
  - OPTIC ISCHAEMIC NEUROPATHY [None]
  - HEART RATE IRREGULAR [None]
